FAERS Safety Report 13061057 (Version 1)
Quarter: 2016Q4

REPORT INFORMATION
  Report Type: Spontaneous
  Country: US (occurrence: US)
  Receive Date: 20161226
  Receipt Date: 20161226
  Transmission Date: 20170207
  Serious: No
  Sender: FDA-Public Use
  Company Number: US-TAKEDA-2016TUS022813

PATIENT
  Sex: Male
  Weight: 4.82 kg

DRUGS (1)
  1. PREVACID [Suspect]
     Active Substance: LANSOPRAZOLE
     Indication: GASTROOESOPHAGEAL REFLUX DISEASE
     Dosage: 1 ML, BID
     Route: 048
     Dates: start: 20160929

REACTIONS (2)
  - Blood potassium increased [Not Recovered/Not Resolved]
  - Drug administered to patient of inappropriate age [Unknown]
